FAERS Safety Report 9270142 (Version 1)
Quarter: 2013Q2

REPORT INFORMATION
  Report Type: Spontaneous
  Country: GB (occurrence: GB)
  Receive Date: 20130503
  Receipt Date: 20130503
  Transmission Date: 20140414
  Serious: Yes (Other)
  Sender: FDA-Public Use
  Company Number: GB-009507513-1304GBR017555

PATIENT
  Sex: Female

DRUGS (2)
  1. NEXPLANON [Suspect]
     Dosage: UNK
     Dates: start: 20130405, end: 20130405
  2. NEXPLANON [Suspect]
     Dosage: IMPLANT 3 YEARS
     Route: 059
     Dates: start: 20130405

REACTIONS (1)
  - Device difficult to use [Recovered/Resolved]
